FAERS Safety Report 20829141 (Version 1)
Quarter: 2022Q2

REPORT INFORMATION
  Report Type: Spontaneous
  Country: US (occurrence: US)
  Receive Date: 20220513
  Receipt Date: 20220513
  Transmission Date: 20220720
  Serious: No
  Sender: FDA-Public Use
  Company Number: US-SANOFI-01093236

PATIENT

DRUGS (1)
  1. XYZAL ALLERGY 24HR [Suspect]
     Active Substance: LEVOCETIRIZINE DIHYDROCHLORIDE
     Route: 065

REACTIONS (10)
  - Nasal congestion [Unknown]
  - Cough [Unknown]
  - Nasopharyngitis [Unknown]
  - Productive cough [Unknown]
  - Illness [Unknown]
  - Therapeutic product effect delayed [Unknown]
  - Headache [Unknown]
  - Dyspnoea [Unknown]
  - Somnolence [Unknown]
  - Fatigue [Unknown]
